FAERS Safety Report 13735370 (Version 1)
Quarter: 2017Q3

REPORT INFORMATION
  Report Type: Spontaneous
  Country: US (occurrence: US)
  Receive Date: 20170709
  Receipt Date: 20170709
  Transmission Date: 20171127
  Serious: Yes (Hospitalization, Disabling)
  Sender: FDA-Public Use
  Company Number: None

PATIENT
  Age: 48 Year
  Sex: Female
  Weight: 101.2 kg

DRUGS (7)
  1. CLONAZEPAM 1MG [Suspect]
     Active Substance: CLONAZEPAM
     Indication: ANXIETY
     Dosage: ?          QUANTITY:3 TABLET(S);?
     Route: 048
     Dates: start: 19980701, end: 20170101
  2. MAGNESIUM MALATE [Concomitant]
  3. B6 [Concomitant]
     Active Substance: PYRIDOXINE HYDROCHLORIDE
  4. VALIUM [Concomitant]
     Active Substance: DIAZEPAM
  5. ZINC PICOLINATE [Concomitant]
     Active Substance: ZINC PICOLINATE
  6. WP THYROID [Concomitant]
     Active Substance: THYROID, PORCINE
  7. LIOTHYRONINE [Concomitant]
     Active Substance: LIOTHYRONINE

REACTIONS (2)
  - Suicidal ideation [None]
  - Drug dependence [None]

NARRATIVE: CASE EVENT DATE: 20070501
